FAERS Safety Report 6845723-X (Version None)
Quarter: 2010Q3

REPORT INFORMATION
  Report Type: 
  Country: None (occurrence: None)
  Receive Date: 20100715
  Receipt Date: 20070825
  Transmission Date: 20110219
  Serious: No
  Sender: FDA-Public Use
  Company Number: US-PFIZER INC-2007072356

PATIENT
  Sex: Female
  Weight: 85.5 kg

DRUGS (5)
  1. CHANTIX [Suspect]
     Indication: SMOKING CESSATION THERAPY
     Dates: start: 20070822
  2. LEXAPRO [Concomitant]
  3. CONCERTA [Concomitant]
  4. AMBIEN [Concomitant]
     Dates: end: 20070801
  5. LUNESTA [Concomitant]
     Dates: start: 20070801

REACTIONS (2)
  - DYSGEUSIA [None]
  - RASH MACULAR [None]
